FAERS Safety Report 9884587 (Version 2)
Quarter: 2018Q1

REPORT INFORMATION
  Report Type: Spontaneous
  Country: US (occurrence: US)
  Receive Date: 20140210
  Receipt Date: 20180116
  Transmission Date: 20180509
  Serious: No
  Sender: FDA-Public Use
  Company Number: US-ALLERGAN-1320117US

PATIENT
  Age: 52 Year
  Sex: Female

DRUGS (3)
  1. JUVEDERM [Suspect]
     Active Substance: HYALURONIC ACID
     Indication: PRODUCT USED FOR UNKNOWN INDICATION
     Dosage: UNK
     Route: 065
     Dates: start: 20131218, end: 20131218
  2. BOTOX [Suspect]
     Active Substance: ONABOTULINUMTOXINA
     Indication: SKIN WRINKLING
     Dosage: UNK, SINGLE
     Route: 030
     Dates: start: 20131218, end: 20131218
  3. JUVEDERM [Suspect]
     Active Substance: HYALURONIC ACID
     Dosage: UNK
     Dates: start: 20131211, end: 20131211

REACTIONS (6)
  - Contusion [Recovered/Resolved]
  - Facial pain [Recovered/Resolved]
  - Skin disorder [Recovered/Resolved]
  - Road traffic accident [Recovered/Resolved]
  - Swelling [Recovered/Resolved]
  - Feeling hot [Recovered/Resolved]

NARRATIVE: CASE EVENT DATE: 20131219
